FAERS Safety Report 16647467 (Version 2)
Quarter: 2019Q3

REPORT INFORMATION
  Report Type: Spontaneous
  Country: GB (occurrence: GB)
  Receive Date: 20190730
  Receipt Date: 20190923
  Transmission Date: 20191004
  Serious: Yes (Hospitalization, Other)
  Sender: FDA-Public Use
  Company Number: GB-JNJFOC-20190729800

PATIENT
  Age: 8 Decade
  Sex: Female

DRUGS (1)
  1. GOLIMUMAB [Suspect]
     Active Substance: GOLIMUMAB
     Indication: PSORIATIC ARTHROPATHY
     Dosage: 50MG/0.5 ML
     Route: 058

REACTIONS (4)
  - Musculoskeletal pain [Unknown]
  - Hip fracture [Unknown]
  - Wrist fracture [Unknown]
  - Fall [Unknown]
